FAERS Safety Report 15839177 (Version 1)
Quarter: 2019Q1

REPORT INFORMATION
  Report Type: Spontaneous
  Country: ES (occurrence: ES)
  Receive Date: 20190117
  Receipt Date: 20190117
  Transmission Date: 20190417
  Serious: Yes (Life-Threatening, Hospitalization)
  Sender: FDA-Public Use
  Company Number: ES-TEVA-2019-ES-999683

PATIENT
  Age: 32 Year
  Sex: Female

DRUGS (3)
  1. COLCHIMAX 0,5/5 MG COMPRIMIDOS, 60 [Concomitant]
     Indication: PERICARDITIS
     Dosage: 1/2-0-1/2
     Route: 048
     Dates: start: 20180122, end: 20180203
  2. IBUPROFENO [Suspect]
     Active Substance: IBUPROFEN
     Indication: PERICARDITIS
     Dosage: 1800 MILLIGRAM DAILY;
     Route: 048
     Dates: start: 20180122, end: 20180203
  3. SINTROM [Interacting]
     Active Substance: ACENOCOUMAROL
     Indication: AORTIC VALVE REPLACEMENT
     Dosage: SP
     Route: 048
     Dates: start: 20180119, end: 20180203

REACTIONS (3)
  - Haemothorax [Recovered/Resolved]
  - Drug interaction [Unknown]
  - Shock haemorrhagic [Unknown]

NARRATIVE: CASE EVENT DATE: 20180203
